FAERS Safety Report 6709043-6 (Version None)
Quarter: 2010Q2

REPORT INFORMATION
  Report Type: 
  Country: None (occurrence: None)
  Receive Date: 20100504
  Receipt Date: 20100420
  Transmission Date: 20101027
  Serious: No
  Sender: FDA-Public Use
  Company Number: US-BAYER-201020204NA

PATIENT
  Age: 69 Year
  Sex: Male

DRUGS (3)
  1. LEUKINE [Suspect]
     Indication: NEUTROPENIA
     Route: 042
     Dates: start: 20100420
  2. LEUKINE [Suspect]
     Route: 058
     Dates: start: 20100418
  3. LEUKINE [Suspect]
     Route: 058
     Dates: start: 20100419

REACTIONS (1)
  - NO ADVERSE EVENT [None]
